FAERS Safety Report 7230657-1 (Version None)
Quarter: 2011Q1

REPORT INFORMATION
  Report Type: 
  Country: None (occurrence: None)
  Receive Date: 20110118
  Receipt Date: 20110110
  Transmission Date: 20110831
  Serious: Yes (Other)
  Sender: FDA-Public Use
  Company Number: FR-JNJFOC-20101007037

PATIENT
  Sex: Female
  Weight: 50 kg

DRUGS (1)
  1. RISPERDAL CONSTA [Suspect]
     Indication: SCHIZOPHRENIA
     Route: 030

REACTIONS (4)
  - PRODUCT STERILITY LACKING [None]
  - PRODUCT QUALITY ISSUE [None]
  - FOREIGN BODY [None]
  - DEVICE BREAKAGE [None]
